FAERS Safety Report 13006082 (Version 1)
Quarter: 2016Q4

REPORT INFORMATION
  Report Type: Spontaneous
  Country: US (occurrence: US)
  Receive Date: 20161206
  Receipt Date: 20161206
  Transmission Date: 20170207
  Serious: No
  Sender: FDA-Public Use
  Company Number: None

PATIENT

DRUGS (1)
  1. NOVOLOG  100 UNITS/ML [Suspect]
     Active Substance: INSULIN ASPART
     Dosage: TYPE - VIAL

REACTIONS (2)
  - Dose calculation error [None]
  - Wrong drug administered [None]
